FAERS Safety Report 5836098-3 (Version None)
Quarter: 2008Q3

REPORT INFORMATION
  Report Type: 
  Country: None (occurrence: None)
  Receive Date: 20080805
  Receipt Date: 20080725
  Transmission Date: 20090109
  Serious: Yes (Hospitalization)
  Sender: FDA-Public Use
  Company Number: TCI2008A03546

PATIENT
  Age: 74 Year
  Sex: Male

DRUGS (2)
  1. LANSAP (LANSOPRAZOLE,CLARITHROMYCIN,AMOXICILLIN) (PREPARATION FOR ORAL [Suspect]
     Indication: ANTIBIOTIC THERAPY
     Dosage: (2 IN 1 D), PER ORAL
     Route: 048
     Dates: start: 20080104
  2. GLYBURIDE [Suspect]
     Indication: TYPE 2 DIABETES MELLITUS
     Dosage: PER ORAL
     Route: 048

REACTIONS (3)
  - ALTERED STATE OF CONSCIOUSNESS [None]
  - BLOOD GLUCOSE DECREASED [None]
  - POTENTIATING DRUG INTERACTION [None]
